FAERS Safety Report 24294593 (Version 2)
Quarter: 2024Q3

REPORT INFORMATION
  Report Type: Spontaneous
  Country: MT (occurrence: MT)
  Receive Date: 20240906
  Receipt Date: 20240927
  Transmission Date: 20241017
  Serious: Yes (Death, Life-Threatening, Disabling, Other)
  Sender: SANOFI AVENTIS
  Company Number: MT-MLMSERVICE-20240814-PI162019-00249-2

PATIENT
  Age: 72 Year
  Sex: Male

DRUGS (8)
  1. OXALIPLATIN [Suspect]
     Active Substance: OXALIPLATIN
     Indication: Adenocarcinoma gastric
     Dosage: UNK UNK, QCY
     Dates: start: 202107, end: 202109
  2. OXALIPLATIN [Suspect]
     Active Substance: OXALIPLATIN
     Dosage: UNK UNK, Q3W
     Dates: start: 2021, end: 2021
  3. OXALIPLATIN [Suspect]
     Active Substance: OXALIPLATIN
     Dosage: UNK UNK, QCY AT A REDUCED DOSE OF 80%
  4. RALTITREXED [Suspect]
     Active Substance: RALTITREXED
     Indication: Adenocarcinoma gastric
     Dosage: UNK UNK, Q3W
     Dates: start: 2021, end: 2021
  5. RALTITREXED [Suspect]
     Active Substance: RALTITREXED
     Indication: Gastric cancer stage IV
     Dosage: REDUCED DOSE OF 75%
     Dates: start: 2021, end: 2021
  6. LEUCOVORIN CALCIUM [Concomitant]
     Active Substance: LEUCOVORIN CALCIUM
     Indication: Adenocarcinoma gastric
     Dosage: UNK UNK, QCY
     Dates: start: 202109, end: 2021
  7. LEUCOVORIN CALCIUM [Concomitant]
     Active Substance: LEUCOVORIN CALCIUM
     Dosage: UNK UNK, QCY
     Dates: start: 202107, end: 2021
  8. FLUOROURACIL [Concomitant]
     Active Substance: FLUOROURACIL
     Indication: Adenocarcinoma gastric
     Dosage: UNK UNK, QCY
     Dates: start: 202107, end: 202109

REACTIONS (15)
  - Interstitial lung disease [Fatal]
  - Lung opacity [Fatal]
  - Emphysema [Fatal]
  - Pulmonary septal thickening [Fatal]
  - Exercise tolerance decreased [Fatal]
  - Dyspnoea exertional [Fatal]
  - Cough [Fatal]
  - Loss of personal independence in daily activities [Fatal]
  - Mobility decreased [Fatal]
  - Rales [Fatal]
  - Pulmonary fibrosis [Fatal]
  - Bronchiectasis [Fatal]
  - Organising pneumonia [Fatal]
  - Dyspnoea [Fatal]
  - Respiratory failure [Fatal]

NARRATIVE: CASE EVENT DATE: 20210101
